FAERS Safety Report 13646669 (Version 4)
Quarter: 2017Q3

REPORT INFORMATION
  Report Type: Spontaneous
  Country: US (occurrence: US)
  Receive Date: 20170613
  Receipt Date: 20170828
  Transmission Date: 20171127
  Serious: No
  Sender: FDA-Public Use
  Company Number: US-PFIZER INC-2017255508

PATIENT
  Age: 31 Year
  Sex: Male
  Weight: 113 kg

DRUGS (7)
  1. LEVOTHYROXINE. [Concomitant]
     Active Substance: LEVOTHYROXINE
     Indication: CONGENITAL HYPOTHYROIDISM
     Dosage: 200 MG, DAILY
     Route: 048
     Dates: start: 19851124
  2. SAXENDA [Concomitant]
     Active Substance: LIRAGLUTIDE
     Indication: WEIGHT DECREASED
     Dosage: 6 MG, 1X/DAY
     Dates: start: 2017
  3. SAXENDA [Concomitant]
     Active Substance: LIRAGLUTIDE
     Dosage: UNK, DAILY(ONE INJECTION EVERY DAY)
     Dates: start: 201702
  4. GENOTROPIN [Suspect]
     Active Substance: SOMATROPIN
     Indication: GROWTH HORMONE DEFICIENCY
     Dosage: 2.0 MG, DAILY
     Dates: start: 20170522, end: 20170605
  5. GENOTROPIN [Suspect]
     Active Substance: SOMATROPIN
     Dosage: 2.0 MG, DAILY
     Dates: start: 20170522, end: 20170605
  6. LEVOTHYROXINE. [Concomitant]
     Active Substance: LEVOTHYROXINE
     Dosage: 0.137 MG, 2X/DAY
     Route: 048
  7. GENOTROPIN [Suspect]
     Active Substance: SOMATROPIN
     Dosage: 0.2 MG, DAILY(ONE INJECTION DAILY)
     Dates: start: 20170522

REACTIONS (5)
  - Drug dose omission [Not Recovered/Not Resolved]
  - Pre-existing condition improved [Not Recovered/Not Resolved]
  - Incorrect dose administered [Recovered/Resolved]
  - Intentional product use issue [Unknown]
  - Therapeutic response unexpected [Not Recovered/Not Resolved]

NARRATIVE: CASE EVENT DATE: 201705
